FAERS Safety Report 16742608 (Version 3)
Quarter: 2021Q1

REPORT INFORMATION
  Report Type: Report from Study
  Country: US (occurrence: US)
  Receive Date: 20190826
  Receipt Date: 20210329
  Transmission Date: 20210419
  Serious: Yes (Hospitalization, Other)
  Sender: FDA-Public Use
  Company Number: US-SHIRE-US201924968

PATIENT
  Age: 40 Year
  Sex: Male

DRUGS (8)
  1. TEDUGLUTIDE [Suspect]
     Active Substance: TEDUGLUTIDE
     Indication: SHORT-BOWEL SYNDROME
     Dosage: 3.63 MILLIGRAM, QD
     Route: 058
     Dates: start: 20190717
  2. TEDUGLUTIDE [Suspect]
     Active Substance: TEDUGLUTIDE
     Dosage: 0.3630 (UNIT UNKNOWN), QD
     Route: 058
     Dates: start: 20190806
  3. TEDUGLUTIDE [Suspect]
     Active Substance: TEDUGLUTIDE
     Dosage: 0.3630 (UNIT UNKNOWN), QD
     Route: 058
     Dates: start: 20190806
  4. TEDUGLUTIDE [Suspect]
     Active Substance: TEDUGLUTIDE
     Dosage: 0.3630 (UNIT UNKNOWN), QD
     Route: 058
     Dates: start: 20190806
  5. TEDUGLUTIDE [Suspect]
     Active Substance: TEDUGLUTIDE
     Dosage: 0.3630 (UNIT UNKNOWN), QD
     Route: 058
     Dates: start: 20190806
  6. TEDUGLUTIDE [Suspect]
     Active Substance: TEDUGLUTIDE
     Indication: SHORT-BOWEL SYNDROME
     Dosage: 3.63 MILLIGRAM, QD
     Route: 058
     Dates: start: 20190717
  7. TEDUGLUTIDE [Suspect]
     Active Substance: TEDUGLUTIDE
     Indication: SHORT-BOWEL SYNDROME
     Dosage: 3.63 MILLIGRAM, QD
     Route: 058
     Dates: start: 20190717
  8. TEDUGLUTIDE [Suspect]
     Active Substance: TEDUGLUTIDE
     Indication: SHORT-BOWEL SYNDROME
     Dosage: 3.63 MILLIGRAM, QD
     Route: 058
     Dates: start: 20190717

REACTIONS (3)
  - Blood sodium decreased [Not Recovered/Not Resolved]
  - Device related infection [Unknown]
  - Weight increased [Not Recovered/Not Resolved]

NARRATIVE: CASE EVENT DATE: 20190815
